FAERS Safety Report 10873758 (Version 1)
Quarter: 2015Q1

REPORT INFORMATION
  Report Type: Spontaneous
  Country: US (occurrence: US)
  Receive Date: 20150227
  Receipt Date: 20150227
  Transmission Date: 20150721
  Serious: Yes (Other)
  Sender: FDA-Public Use
  Company Number: US-TEVA-543072USA

PATIENT
  Sex: Female

DRUGS (3)
  1. VITAMIN D [Concomitant]
     Active Substance: CHOLECALCIFEROL
     Indication: PAIN
  2. COPAXONE [Suspect]
     Active Substance: GLATIRAMER ACETATE
     Dosage: UNKNOWN FORM STRENGTH
  3. MOBIC [Concomitant]
     Active Substance: MELOXICAM
     Indication: PAIN

REACTIONS (5)
  - Pain in extremity [Unknown]
  - Multiple sclerosis relapse [Unknown]
  - Migraine [Unknown]
  - Spinal pain [Unknown]
  - Central nervous system lesion [Unknown]
